FAERS Safety Report 10477871 (Version 1)
Quarter: 2014Q3

REPORT INFORMATION
  Report Type: Spontaneous
  Country: US (occurrence: None)
  Receive Date: 20140925
  Receipt Date: 20140925
  Transmission Date: 20150326
  Serious: Yes (Death)
  Sender: FDA-Public Use
  Company Number: None

PATIENT
  Age: 46 Year
  Sex: Male
  Weight: 99.79 kg

DRUGS (1)
  1. CHANTIX [Suspect]
     Active Substance: VARENICLINE TARTRATE
     Indication: SMOKING CESSATION THERAPY
     Route: 048
     Dates: start: 20140912, end: 20140917

REACTIONS (6)
  - Completed suicide [None]
  - Anger [None]
  - Abnormal behaviour [None]
  - Agitation [None]
  - Dysarthria [None]
  - Aggression [None]

NARRATIVE: CASE EVENT DATE: 20140917
